FAERS Safety Report 9213892 (Version 1)
Quarter: 2013Q2

REPORT INFORMATION
  Report Type: Spontaneous
  Country: US (occurrence: US)
  Receive Date: 20130405
  Receipt Date: 20130405
  Transmission Date: 20140414
  Serious: No
  Sender: FDA-Public Use
  Company Number: US-009507513-1303USA013060

PATIENT
  Age: 85 Year
  Sex: Female

DRUGS (3)
  1. DULERA [Suspect]
     Indication: DYSPNOEA
     Dosage: 2 PUFF, BID
     Route: 055
     Dates: start: 20130323, end: 20130325
  2. IBUPROFEN [Concomitant]
  3. PROAIR (ALBUTEROL SULFATE) [Concomitant]
     Indication: DYSPNOEA

REACTIONS (1)
  - Oral pain [Recovering/Resolving]
